FAERS Safety Report 16807875 (Version 8)
Quarter: 2022Q2

REPORT INFORMATION
  Report Type: Spontaneous
  Country: GB (occurrence: GB)
  Receive Date: 20190915
  Receipt Date: 20220614
  Transmission Date: 20220721
  Serious: Yes (Death, Congenital Anomaly, Other)
  Sender: FDA-Public Use
  Company Number: PHHY2019GB210254

PATIENT
  Age: 4 Day
  Sex: Male
  Weight: 2.85 kg

DRUGS (17)
  1. ABACAVIR\LAMIVUDINE [Suspect]
     Active Substance: ABACAVIR\LAMIVUDINE
     Indication: Foetal exposure during pregnancy
     Dosage: UNK (MATERNAL DOSE: 1 TABLET/CAPSULE (1 TRIMESTER)
     Route: 064
  2. ABACAVIR\LAMIVUDINE [Suspect]
     Active Substance: ABACAVIR\LAMIVUDINE
     Dosage: UNK (MATERNAL DOSE: 1 DOSAGE FORM, QD (1 TABLET/CAPSULE; STRENGTH: 600 MG/ 300 MG)
     Route: 064
  3. ABACAVIR\LAMIVUDINE [Suspect]
     Active Substance: ABACAVIR\LAMIVUDINE
     Dosage: UNK (MATERNAL DOSE: 400 DF, QD)
     Route: 064
  4. NEVIRAPINE [Suspect]
     Active Substance: NEVIRAPINE
     Indication: Foetal exposure during pregnancy
     Dosage: UNK, (MATERNAL DOSE: 400 MG, QD (1 TRIMESTER)
     Route: 064
  5. NEVIRAPINE [Suspect]
     Active Substance: NEVIRAPINE
     Dosage: UNK, (MATERNAL DOSE: 400 MG, QD
     Route: 064
  6. LABETALOL [Suspect]
     Active Substance: LABETALOL\LABETALOL HYDROCHLORIDE
     Indication: Foetal exposure during pregnancy
     Dosage: UNK (MATERNAL DOSE: 1 TRIMESTER
     Route: 064
  7. LABETALOL [Suspect]
     Active Substance: LABETALOL\LABETALOL HYDROCHLORIDE
     Dosage: UNK (MATERNAL DOSE: 1 DOSAGE FORM
     Route: 064
  8. LABETALOL [Suspect]
     Active Substance: LABETALOL\LABETALOL HYDROCHLORIDE
     Dosage: UNK (MATERNAL DOSE: UNK (39 WEEKS))
     Route: 064
  9. NIFEDIPINE [Suspect]
     Active Substance: NIFEDIPINE
     Indication: Foetal exposure during pregnancy
     Dosage: UNK (MATERNAL DOSE: 1 TRIMESTER
     Route: 064
  10. ASPIRIN [Suspect]
     Active Substance: ASPIRIN
     Indication: Foetal exposure during pregnancy
     Dosage: UNK (MATERNAL DOSE: 1 TRIMESTER
     Route: 064
  11. ASPIRIN [Suspect]
     Active Substance: ASPIRIN
     Dosage: UNK (MATERNAL DOSE: 1 DOSAGE FORM
     Route: 064
  12. VITAMIN D [Suspect]
     Active Substance: VITAMIN D NOS
     Indication: Foetal exposure during pregnancy
     Dosage: UNK (TABLET)
     Route: 064
  13. VITAMIN D [Suspect]
     Active Substance: VITAMIN D NOS
     Dosage: UNK (MATERNAL DOSE: PRIOR TO CONCEPTION, DURING 1, 2 AND 3 TRIMESTER, ( 39 WEEKS))
     Route: 064
  14. COMBIVIR [Suspect]
     Active Substance: LAMIVUDINE\ZIDOVUDINE
     Indication: Foetal exposure during pregnancy
     Dosage: UNK (MATERNAL DOSE: 900 MG, QD
     Route: 064
  15. VIRAMUNE [Suspect]
     Active Substance: NEVIRAPINE
     Indication: Foetal exposure during pregnancy
     Dosage: (MATERNAL DOSE: 400 MG, QD)
     Route: 064
  16. CHOLECALCIFEROL [Suspect]
     Active Substance: CHOLECALCIFEROL
     Indication: Foetal exposure during pregnancy
     Dosage: UNK (MATERNAL DOSE: 1 TRIMESTER)
     Route: 064
  17. ERGOCALCIFEROL [Concomitant]
     Active Substance: ERGOCALCIFEROL
     Indication: Product used for unknown indication
     Dosage: UNK
     Route: 065

REACTIONS (14)
  - Trisomy 21 [Fatal]
  - Polydactyly [Fatal]
  - Gene mutation [Fatal]
  - Pulmonary hypertension [Fatal]
  - Atrioventricular septal defect [Fatal]
  - Dandy-Walker syndrome [Fatal]
  - Congenital central nervous system anomaly [Fatal]
  - Macrocephaly [Fatal]
  - Speech disorder developmental [Fatal]
  - Attention deficit hyperactivity disorder [Fatal]
  - Death [Fatal]
  - Ataxia [Fatal]
  - Neurodevelopmental disorder [Fatal]
  - Foetal exposure during pregnancy [Unknown]

NARRATIVE: CASE EVENT DATE: 20110305
